FAERS Safety Report 8952236 (Version 1)
Quarter: 2012Q4

REPORT INFORMATION
  Report Type: 
  Country: US (occurrence: US)
  Receive Date: 20121204
  Receipt Date: 20121204
  Transmission Date: 20130627
  Serious: No
  Sender: FDA-Public Use
  Company Number: US-AMGEN-USASP2012071511

PATIENT
  Age: 51 Year
  Sex: Female

DRUGS (2)
  1. ENBREL [Suspect]
     Indication: PSORIATIC ARTHROPATHY
     Dosage: 50 mg, qwk
     Dates: start: 2005
  2. ENBREL [Suspect]
     Indication: PSORIASIS

REACTIONS (4)
  - Lichen sclerosus [Not Recovered/Not Resolved]
  - Erythema [Unknown]
  - Nail disorder [Not Recovered/Not Resolved]
  - Nail psoriasis [Not Recovered/Not Resolved]
